FAERS Safety Report 5035878-4 (Version None)
Quarter: 2006Q2

REPORT INFORMATION
  Report Type: 
  Country: None (occurrence: None)
  Receive Date: 20060526
  Receipt Date: 20060222
  Transmission Date: 20061013
  Serious: Yes (Hospitalization)
  Sender: FDA-Public Use
  Company Number: 222438

PATIENT
  Age: 53 Year
  Sex: Female
  Weight: 120.2 kg

DRUGS (1)
  1. RAPTIVA [Suspect]
     Indication: PSORIASIS
     Dosage: 130 MG
     Dates: start: 20040923, end: 20051201

REACTIONS (1)
  - PSORIASIS [None]
